FAERS Safety Report 7563332-4 (Version None)
Quarter: 2011Q2

REPORT INFORMATION
  Report Type: 
  Country: None (occurrence: None)
  Receive Date: 20110622
  Receipt Date: 20110620
  Transmission Date: 20111010
  Serious: Yes (Death, Hospitalization)
  Sender: FDA-Public Use
  Company Number: A0899163A

PATIENT
  Age: 75 Year
  Sex: Female

DRUGS (1)
  1. ROSIGLITAZONE MALEATE [Suspect]
     Indication: DIABETES MELLITUS
     Dosage: 4MG PER DAY
     Route: 048
     Dates: start: 20020101, end: 20050101

REACTIONS (8)
  - CARDIOGENIC SHOCK [None]
  - HYPOXIC-ISCHAEMIC ENCEPHALOPATHY [None]
  - PAIN [None]
  - CORONARY ARTERY DISEASE [None]
  - ACUTE MYOCARDIAL INFARCTION [None]
  - ARRHYTHMIA [None]
  - HEART INJURY [None]
  - CARDIAC FAILURE CONGESTIVE [None]
